FAERS Safety Report 16251666 (Version 1)
Quarter: 2019Q2

REPORT INFORMATION
  Report Type: Spontaneous
  Country: US (occurrence: US)
  Receive Date: 20190429
  Receipt Date: 20190429
  Transmission Date: 20190711
  Serious: No
  Sender: FDA-Public Use
  Company Number: US-FRESENIUS KABI-FK201904905

PATIENT
  Sex: Male

DRUGS (1)
  1. DIPRIVAN [Suspect]
     Active Substance: PROPOFOL
     Indication: PRODUCT USED FOR UNKNOWN INDICATION
     Dosage: UNKNOWN
     Route: 065

REACTIONS (1)
  - Oxygen saturation decreased [Unknown]

NARRATIVE: CASE EVENT DATE: 2018
